FAERS Safety Report 10222791 (Version 1)
Quarter: 2014Q2

REPORT INFORMATION
  Report Type: Spontaneous
  Country: IT (occurrence: IT)
  Receive Date: 20140606
  Receipt Date: 20140606
  Transmission Date: 20141212
  Serious: Yes (Other)
  Sender: FDA-Public Use
  Company Number: IT-ABBVIE-14P-083-1245449-00

PATIENT
  Age: 13 Month
  Sex: Male

DRUGS (5)
  1. VALPROIC ACID [Suspect]
     Indication: PARTIAL SEIZURES
     Route: 065
  2. CARBAMAZEPINE [Suspect]
     Indication: PARTIAL SEIZURES
     Route: 065
  3. LEVETIRACETAM [Suspect]
     Indication: PARTIAL SEIZURES
     Route: 065
  4. PYRIDOXINE [Suspect]
     Indication: PARTIAL SEIZURES
     Route: 065
  5. PHENOBARBITAL [Concomitant]
     Indication: PRODUCT USED FOR UNKNOWN INDICATION

REACTIONS (3)
  - Convulsion [Recovered/Resolved]
  - Drug ineffective [Recovered/Resolved]
  - Off label use [Unknown]
